FAERS Safety Report 6001234-5 (Version None)
Quarter: 2008Q4

REPORT INFORMATION
  Report Type: 
  Country: None (occurrence: None)
  Receive Date: 20081215
  Receipt Date: 20071105
  Transmission Date: 20090506
  Serious: No
  Sender: FDA-Public Use
  Company Number: US-AMGEN-KDL250816

PATIENT
  Sex: Female
  Weight: 68.1 kg

DRUGS (1)
  1. ENBREL [Suspect]
     Indication: RHEUMATOID ARTHRITIS
     Route: 058
     Dates: start: 20031101

REACTIONS (5)
  - BRONCHITIS [None]
  - INJECTION SITE PAIN [None]
  - NASOPHARYNGITIS [None]
  - RHEUMATOID ARTHRITIS [None]
  - UPPER RESPIRATORY TRACT INFECTION [None]
